FAERS Safety Report 6014956-7 (Version None)
Quarter: 2008Q4

REPORT INFORMATION
  Report Type: 
  Country: None (occurrence: None)
  Receive Date: 20081219
  Receipt Date: 20081204
  Transmission Date: 20090506
  Serious: Yes (Life-Threatening)
  Sender: FDA-Public Use
  Company Number: FR-GENENTECH-273502

PATIENT
  Sex: Female

DRUGS (9)
  1. MABTHERA [Suspect]
     Indication: B-CELL LYMPHOMA
     Dosage: UNK
     Route: 042
     Dates: start: 20050101, end: 20050801
  2. MABTHERA [Suspect]
     Dosage: UNK
     Route: 042
     Dates: start: 20070801, end: 20071201
  3. MABTHERA [Suspect]
     Dosage: UNK
     Route: 042
     Dates: start: 20080401
  4. CYCLOPHOSPHAMIDE [Concomitant]
     Indication: B-CELL LYMPHOMA
     Dosage: UNK
     Dates: start: 20070801, end: 20071201
  5. FLUDARABINE PHOSPHATE [Concomitant]
     Indication: B-CELL LYMPHOMA
     Dosage: UNK
     Dates: start: 20070801, end: 20071201
  6. CYCLOPHOSPHAMIDE [Concomitant]
     Dosage: UNK
     Dates: start: 20050101, end: 20050801
  7. DOXORUBICIN HCL [Concomitant]
     Indication: B-CELL LYMPHOMA
     Dosage: UNK
     Dates: start: 20050101, end: 20050801
  8. PREDNISOLONE [Concomitant]
     Indication: B-CELL LYMPHOMA
     Dosage: UNK
     Dates: start: 20050101, end: 20050801
  9. TENIPOSIDE [Concomitant]
     Indication: B-CELL LYMPHOMA
     Dosage: UNK
     Dates: start: 20050101, end: 20050801

REACTIONS (3)
  - B-CELL LYMPHOMA RECURRENT [None]
  - PNEUMOCYSTIS JIROVECI PNEUMONIA [None]
  - PROGRESSIVE MULTIFOCAL LEUKOENCEPHALOPATHY [None]
